FAERS Safety Report 8981360 (Version 1)
Quarter: 2012Q4

REPORT INFORMATION
  Report Type: 
  Country: US (occurrence: US)
  Receive Date: 20121221
  Receipt Date: 20121221
  Transmission Date: 20130627
  Serious: No
  Sender: FDA-Public Use
  Company Number: US-VERTEX PHARMACEUTICALS INC.-2012-026481

PATIENT
  Sex: Female
  Weight: 48 kg

DRUGS (3)
  1. INCIVEK [Suspect]
     Indication: HEPATITIS C
     Dosage: 750 mg, tid
     Route: 048
     Dates: start: 20121028, end: 20121217
  2. PEGINTERFERON [Suspect]
     Indication: HEPATITIS C
     Dosage: 80 ?g, weekly
     Route: 058
     Dates: start: 20121028, end: 20121217
  3. RIBAVIRIN [Suspect]
     Indication: HEPATITIS C
     Dosage: 400 mg am/600 mg pm
     Dates: start: 20121028, end: 20121217

REACTIONS (5)
  - Influenza like illness [Not Recovered/Not Resolved]
  - Pyrexia [Not Recovered/Not Resolved]
  - Pain [Not Recovered/Not Resolved]
  - Pulmonary congestion [Not Recovered/Not Resolved]
  - Nasal congestion [Not Recovered/Not Resolved]
